FAERS Safety Report 8767101 (Version 1)
Quarter: 2012Q4

REPORT INFORMATION
  Report Type: 
  Country: US (occurrence: US)
  Receive Date: 20120904
  Receipt Date: 20120904
  Transmission Date: 20130627
  Serious: Yes (Other)
  Sender: FDA-Public Use
  Company Number: PHEH2012US017206

PATIENT
  Sex: Female

DRUGS (2)
  1. GILENYA [Suspect]
     Dosage: 0.5 mg, QD
     Route: 048
  2. GILENYA [Suspect]
     Dosage: 0.5 mg, BID
     Route: 048
     Dates: start: 20120727, end: 20120727

REACTIONS (2)
  - Chest pain [Unknown]
  - Overdose [Unknown]
